FAERS Safety Report 9614980 (Version 1)
Quarter: 2013Q4

REPORT INFORMATION
  Report Type: Spontaneous
  Country: US (occurrence: None)
  Receive Date: 20131009
  Receipt Date: 20131009
  Transmission Date: 20140711
  Serious: No
  Sender: FDA-Public Use
  Company Number: None

PATIENT
  Age: 54 Year
  Sex: Female
  Weight: 66.23 kg

DRUGS (2)
  1. GAMMAGARD [Suspect]
     Indication: HYPOGAMMAGLOBULINAEMIA
     Dosage: 45 GM/450ML, INTRAVENOUS
     Route: 042
     Dates: start: 20130911, end: 20130911
  2. GAMMAGARD [Suspect]
     Indication: HYPOGAMMAGLOBULINAEMIA
     Dosage: 45GM/450ML, INTRAVENOUS
     Route: 042
     Dates: start: 20130911, end: 20130911

REACTIONS (1)
  - Erythema [None]
